FAERS Safety Report 8168065-1 (Version None)
Quarter: 2012Q1

REPORT INFORMATION
  Report Type: 
  Country: None (occurrence: None)
  Receive Date: 20120227
  Receipt Date: 20120214
  Transmission Date: 20120608
  Serious: Yes (Other)
  Sender: FDA-Public Use
  Company Number: PHHY2012CN013889

PATIENT
  Sex: Female
  Weight: 57 kg

DRUGS (2)
  1. FEMARA [Suspect]
     Indication: BREAST CANCER
     Dosage: 2.5 MG, QD
     Route: 048
     Dates: start: 20111222, end: 20120105
  2. CALTRATE +D [Concomitant]
     Indication: OSTEOPOROSIS
     Dosage: 1 DF, BID
     Route: 048
     Dates: start: 20111222

REACTIONS (6)
  - FACE OEDEMA [None]
  - OEDEMA [None]
  - SKIN OEDEMA [None]
  - PAPULE [None]
  - PRURITUS GENERALISED [None]
  - DERMATITIS ALLERGIC [None]
